FAERS Safety Report 18741354 (Version 1)
Quarter: 2021Q1

REPORT INFORMATION
  Report Type: Spontaneous
  Country: NL (occurrence: FR)
  Receive Date: 20210114
  Receipt Date: 20210114
  Transmission Date: 20210419
  Serious: Yes (Hospitalization)
  Sender: FDA-Public Use
  Company Number: FR-FRESENIUS KABI-FK202100256

PATIENT
  Age: 62 Year
  Sex: Male
  Weight: 103 kg

DRUGS (6)
  1. CEFEPIME HYDROCHLORIDE. [Suspect]
     Active Substance: CEFEPIME HYDROCHLORIDE
     Indication: PNEUMONIA
     Dosage: 2 G / 12 H
     Route: 042
     Dates: start: 20201002, end: 20201104
  2. LINEZOLID KABI [Suspect]
     Active Substance: LINEZOLID
     Indication: VASCULAR DEVICE INFECTION
     Route: 042
     Dates: start: 20201115, end: 20201116
  3. CEFEPIME HYDROCHLORIDE. [Suspect]
     Active Substance: CEFEPIME HYDROCHLORIDE
     Indication: PNEUMONIA
     Route: 042
     Dates: start: 20200925, end: 20200930
  4. PIPERACILLIN SODIUM/TAZOBACTAM SODIUM [Suspect]
     Active Substance: PIPERACILLIN SODIUM\TAZOBACTAM SODIUM
     Indication: PNEUMONIA
     Route: 042
     Dates: start: 20200923, end: 20200924
  5. LINEZOLID KABI [Suspect]
     Active Substance: LINEZOLID
     Indication: PNEUMONIA
     Route: 042
     Dates: start: 20200924, end: 20200925
  6. LINEZOLID KABI [Suspect]
     Active Substance: LINEZOLID
     Indication: PNEUMONIA
     Route: 042
     Dates: start: 20201001, end: 20201001

REACTIONS (4)
  - Acute kidney injury [Not Recovered/Not Resolved]
  - Hepatocellular injury [Not Recovered/Not Resolved]
  - Jaundice cholestatic [Not Recovered/Not Resolved]
  - Rash maculo-papular [Recovered/Resolved]

NARRATIVE: CASE EVENT DATE: 20201011
